FAERS Safety Report 6098485-0 (Version None)
Quarter: 2009Q1

REPORT INFORMATION
  Report Type: 
  Country: None (occurrence: None)
  Receive Date: 20090302
  Receipt Date: 20090130
  Transmission Date: 20090719
  Serious: No
  Sender: FDA-Public Use
  Company Number: US-BAYER-200841042NA

PATIENT
  Age: 81 Year
  Sex: Female

DRUGS (1)
  1. AVELOX [Suspect]
     Indication: ASTHMA
     Dosage: UNIT DOSE: 400 MG
     Route: 042
     Dates: start: 20081201, end: 20081201

REACTIONS (1)
  - INJECTION SITE IRRITATION [None]
